FAERS Safety Report 15580616 (Version 2)
Quarter: 2018Q4

REPORT INFORMATION
  Report Type: Spontaneous
  Country: US (occurrence: US)
  Receive Date: 20181102
  Receipt Date: 20181113
  Transmission Date: 20190205
  Serious: Yes (Hospitalization)
  Sender: FDA-Public Use
  Company Number: US-TAIHO ONCOLOGY  INC-EU-2018-01476

PATIENT
  Age: 32 Year
  Sex: Male

DRUGS (30)
  1. ZOFRAN [Concomitant]
     Active Substance: ONDANSETRON HYDROCHLORIDE
     Indication: NAUSEA
     Dosage: PRN
     Route: 042
  2. KLONOPIN [Concomitant]
     Active Substance: CLONAZEPAM
     Indication: ANXIETY
     Route: 048
  3. DEXTROSE. [Concomitant]
     Active Substance: DEXTROSE
     Dosage: 25-50 ML IN WATER
     Route: 042
  4. DILAUDID [Concomitant]
     Active Substance: HYDROMORPHONE HYDROCHLORIDE
     Dosage: 0.5MG/0.25ML INJECTION
  5. CALCIUM CARBONATE. [Concomitant]
     Active Substance: CALCIUM CARBONATE
     Route: 048
  6. NARCAN [Concomitant]
     Active Substance: NALOXONE HYDROCHLORIDE
     Dosage: PRN
     Route: 042
  7. DEXTROSE. [Concomitant]
     Active Substance: DEXTROSE
     Dosage: CONTINUOUS PRN
     Route: 042
  8. SODIUM CHLORIDE. [Concomitant]
     Active Substance: SODIUM CHLORIDE
     Route: 042
  9. SODIUM CHLORIDE. [Concomitant]
     Active Substance: SODIUM CHLORIDE
     Dosage: SCH
     Route: 040
  10. CELEXA [Concomitant]
     Active Substance: CITALOPRAM HYDROBROMIDE
     Indication: ADJUSTMENT DISORDER WITH DEPRESSED MOOD
     Dosage: NI
     Route: 048
  11. GLUCAGON. [Concomitant]
     Active Substance: GLUCAGON
     Route: 030
  12. SODIUM CHLORIDE. [Concomitant]
     Active Substance: SODIUM CHLORIDE
     Dosage: 100ML/HR CONTINUOUS
     Route: 042
  13. SODIUM CHLORIDE. [Concomitant]
     Active Substance: SODIUM CHLORIDE
     Dosage: PRN
     Route: 040
  14. DEXAMETHASONE. [Concomitant]
     Active Substance: DEXAMETHASONE
     Dosage: NI
  15. TYLENOL [Concomitant]
     Active Substance: ACETAMINOPHEN
     Dosage: PRN
     Route: 048
  16. GLYCOLAX [Concomitant]
     Active Substance: POLYETHYLENE GLYCOL 3350
     Route: 048
  17. SENOKOT [Concomitant]
     Active Substance: SENNOSIDES
     Route: 048
  18. SODIUM CHLORIDE. [Concomitant]
     Active Substance: SODIUM CHLORIDE
     Dosage: 3-10 ML
     Route: 040
  19. HEPARIN PORCINE [Concomitant]
     Dosage: 0-500 UNITS OF A 100 UNIT/ML SOLUTION
     Route: 040
  20. VITAMIN B6 [Concomitant]
     Active Substance: PYRIDOXINE HYDROCHLORIDE
     Route: 048
  21. ZOFRAN [Concomitant]
     Active Substance: ONDANSETRON HYDROCHLORIDE
     Indication: VOMITING
     Dosage: PRN
     Route: 048
  22. DILAUDID [Concomitant]
     Active Substance: HYDROMORPHONE HYDROCHLORIDE
     Indication: PAIN
     Dosage: PRN
     Route: 048
  23. DILAUDID [Concomitant]
     Active Substance: HYDROMORPHONE HYDROCHLORIDE
     Dosage: PRN
     Route: 048
  24. SKELAXIN [Concomitant]
     Active Substance: METAXALONE
     Route: 048
  25. VITAMIN B6 [Concomitant]
     Active Substance: PYRIDOXINE HYDROCHLORIDE
     Dosage: 2MG/ML
  26. LONSURF [Suspect]
     Active Substance: TIPIRACIL HYDROCHLORIDE\TRIFLURIDINE
     Indication: COLORECTAL CANCER STAGE IV
     Dosage: CYCLE 2 STARTED 21 MAY 2018
     Route: 048
     Dates: start: 20180418
  27. KRISTALOSE [Concomitant]
     Active Substance: LACTULOSE
     Route: 048
  28. DILAUDID [Concomitant]
     Active Substance: HYDROMORPHONE HYDROCHLORIDE
     Dosage: 2MG/ML
  29. THERAGRAN M [Concomitant]
     Active Substance: VITAMINS
     Dosage: IRON DOSAGE 9 MG
     Route: 048
  30. FLEXERIL [Concomitant]
     Active Substance: CYCLOBENZAPRINE HYDROCHLORIDE
     Indication: MUSCLE SPASMS
     Dosage: PRN
     Route: 048

REACTIONS (15)
  - General physical health deterioration [Unknown]
  - Arthralgia [Unknown]
  - Decreased appetite [Unknown]
  - Somnolence [Unknown]
  - Hypoaesthesia [Unknown]
  - Asthenia [Unknown]
  - Dyspnoea exertional [Unknown]
  - Cancer pain [Unknown]
  - Urinary retention [Unknown]
  - Anaemia [Unknown]
  - Weight decreased [Unknown]
  - Cachexia [Unknown]
  - Product dose omission [Unknown]
  - Urinary tract infection [Recovering/Resolving]
  - Gait disturbance [Unknown]

NARRATIVE: CASE EVENT DATE: 20160613
